FAERS Safety Report 6946333-6 (Version None)
Quarter: 2010Q3

REPORT INFORMATION
  Report Type: 
  Country: None (occurrence: None)
  Receive Date: 20100827
  Receipt Date: 20091027
  Transmission Date: 20110219
  Serious: No
  Sender: FDA-Public Use
  Company Number: US-ABBOTT-02P-163-0383038-00

PATIENT
  Age: 36 Year
  Sex: Male
  Weight: 74.91 kg

DRUGS (9)
  1. NIASPAN [Suspect]
     Indication: BLOOD CHOLESTEROL INCREASED
     Route: 048
     Dates: start: 20020101
  2. NIASPAN [Suspect]
     Indication: BLOOD TRIGLYCERIDES INCREASED
     Route: 048
  3. NIASPAN [Suspect]
     Route: 048
  4. NIASPAN [Suspect]
     Dosage: 500 MG IN AM, 1000 MG IN PM
     Route: 048
     Dates: start: 20020101
  5. NIASPAN [Suspect]
     Route: 048
     Dates: start: 20091001
  6. CLARITIN [Concomitant]
     Indication: HYPERSENSITIVITY
  7. MULTI-VITAMIN [Concomitant]
     Indication: SUPPLEMENTATION THERAPY
  8. ASPIRIN [Concomitant]
     Indication: PROPHYLAXIS
     Dates: start: 20020401
  9. ASPIRIN [Concomitant]
     Indication: FLUSHING

REACTIONS (7)
  - FEELING HOT [None]
  - FLUSHING [None]
  - HYPERHIDROSIS [None]
  - MALAISE [None]
  - MICTURITION URGENCY [None]
  - MIDDLE INSOMNIA [None]
  - PRURITUS [None]
